FAERS Safety Report 7811514-6 (Version None)
Quarter: 2011Q4

REPORT INFORMATION
  Report Type: 
  Country: None (occurrence: None)
  Receive Date: 20111013
  Receipt Date: 20111013
  Transmission Date: 20120403
  Serious: Yes (Life-Threatening, Hospitalization)
  Sender: FDA-Public Use
  Company Number: None

PATIENT
  Sex: Female
  Weight: 68 kg

DRUGS (11)
  1. INDOMETHACIN [Concomitant]
  2. ALLOPURINOL [Concomitant]
  3. DABIGATRAN [Suspect]
     Indication: ATRIAL FIBRILLATION
     Dosage: 150 MG
     Route: 048
  4. LISINOPRIL [Concomitant]
  5. FUROSEMIDE [Concomitant]
  6. CARVEDILOL [Concomitant]
  7. ATORVASTATIN [Concomitant]
  8. NATEGLINIDE [Concomitant]
  9. PANTOPRAZOLE [Concomitant]
  10. SPIRONOLACTONE [Concomitant]
  11. LEVOTHYROXINE SODIUM [Concomitant]

REACTIONS (5)
  - PNEUMONIA [None]
  - ANAEMIA [None]
  - INTERNATIONAL NORMALISED RATIO INCREASED [None]
  - OCCULT BLOOD POSITIVE [None]
  - RENAL FAILURE ACUTE [None]
